FAERS Safety Report 7897810-5 (Version None)
Quarter: 2011Q4

REPORT INFORMATION
  Report Type: 
  Country: None (occurrence: None)
  Receive Date: 20111107
  Receipt Date: 20111031
  Transmission Date: 20120403
  Serious: Yes (Hospitalization)
  Sender: FDA-Public Use
  Company Number: US-ABBOTT-11P-163-0870536-00

PATIENT
  Sex: Female
  Weight: 24.97 kg

DRUGS (7)
  1. TOPAMAX [Concomitant]
     Indication: CONVULSION
     Dosage: 100MG IN AM 150 IN EVENING
  2. BOTOX [Concomitant]
     Indication: HYPERTONIA
     Dosage: EVERY 3-4 MONTHS
  3. MIRALAX [Concomitant]
     Indication: PRODUCT USED FOR UNKNOWN INDICATION
  4. LUPRON DEPOT-PED [Suspect]
     Indication: PRECOCIOUS PUBERTY
     Dosage: PEDS DOSE
     Dates: start: 20040101
  5. PHENOBARBITAL TAB [Concomitant]
     Indication: CONVULSION
  6. BACLOPHEN [Concomitant]
     Indication: MUSCLE DISORDER
  7. GLUCOPYRILATE [Concomitant]
     Indication: RESPIRATORY TRACT CONGESTION

REACTIONS (5)
  - VOMITING [None]
  - URINARY TRACT INFECTION [None]
  - DIARRHOEA [None]
  - VIRAL INFECTION [None]
  - PYREXIA [None]
